FAERS Safety Report 24204139 (Version 1)
Quarter: 2024Q3

REPORT INFORMATION
  Report Type: Spontaneous
  Country: US (occurrence: US)
  Receive Date: 20240813
  Receipt Date: 20240813
  Transmission Date: 20241017
  Serious: No
  Sender: SANDOZ
  Company Number: US-SANDOZ-SDZ2024US072206

PATIENT
  Sex: Female

DRUGS (1)
  1. LATANOPROST [Suspect]
     Active Substance: LATANOPROST
     Indication: Product used for unknown indication
     Dosage: 0.005% 2.5ML.1 DROP IN EACH EYE A NIGHT
     Route: 065

REACTIONS (3)
  - Product temperature excursion issue [Unknown]
  - Periorbital swelling [Unknown]
  - Eye swelling [Unknown]
